FAERS Safety Report 5702367-0 (Version None)
Quarter: 2008Q2

REPORT INFORMATION
  Report Type: 
  Country: None (occurrence: None)
  Receive Date: 20080411
  Receipt Date: 20080401
  Transmission Date: 20081010
  Serious: Yes (Other)
  Sender: FDA-Public Use
  Company Number: FR-AVENTIS-200811176FR

PATIENT
  Age: 25 Year
  Sex: Male

DRUGS (6)
  1. NASACORT [Suspect]
     Indication: ASTHMA
     Route: 055
  2. SINGULAIR [Suspect]
     Indication: ASTHMA
     Route: 048
     Dates: start: 20060801, end: 20070915
  3. SYMBICORT [Suspect]
     Indication: ASTHMA
     Route: 055
  4. BRICANYL [Suspect]
     Indication: ASTHMA
     Route: 055
  5. XANAX [Concomitant]
     Indication: ANXIETY
     Route: 048
  6. XYZALL                             /01530201/ [Concomitant]
     Route: 048

REACTIONS (3)
  - AGGRESSION [None]
  - AGITATION [None]
  - INSOMNIA [None]
